FAERS Safety Report 18919563 (Version 2)
Quarter: 2021Q2

REPORT INFORMATION
  Report Type: Spontaneous
  Country: US (occurrence: US)
  Receive Date: 20210221
  Receipt Date: 20210505
  Transmission Date: 20210717
  Serious: No
  Sender: FDA-Public Use
  Company Number: US-SA-2021SA057245

PATIENT
  Age: 12 Year
  Sex: Male

DRUGS (2)
  1. DUPIXENT [Suspect]
     Active Substance: DUPILUMAB
     Indication: DERMATITIS ATOPIC
     Dosage: 200 MG
     Route: 058
     Dates: start: 20210119
  2. DUPIXENT [Suspect]
     Active Substance: DUPILUMAB
     Dosage: UNK, Q4W
     Route: 058
     Dates: start: 2021

REACTIONS (13)
  - Vision blurred [Not Recovered/Not Resolved]
  - Pruritus [Unknown]
  - Muscle spasms [Unknown]
  - Sleep disorder [Recovering/Resolving]
  - Arthralgia [Not Recovered/Not Resolved]
  - Pain in extremity [Unknown]
  - Headache [Unknown]
  - Abdominal pain [Not Recovered/Not Resolved]
  - Dizziness [Not Recovered/Not Resolved]
  - Acne [Unknown]
  - Skin haemorrhage [Unknown]
  - Product use issue [Unknown]
  - Fatigue [Not Recovered/Not Resolved]

NARRATIVE: CASE EVENT DATE: 2021
